FAERS Safety Report 19975792 (Version 1)
Quarter: 2021Q4

REPORT INFORMATION
  Report Type: Report from Study
  Country: BR (occurrence: BR)
  Receive Date: 20211020
  Receipt Date: 20211020
  Transmission Date: 20220303
  Serious: Yes (Other)
  Sender: FDA-Public Use
  Company Number: BR-NOVARTISPH-NVSC2021BR238471

PATIENT
  Sex: Female
  Weight: 98 kg

DRUGS (4)
  1. ZOMETA [Suspect]
     Active Substance: ZOLEDRONIC ACID
     Indication: Product used for unknown indication
     Dosage: QMO
     Route: 065
  2. FEMARA [Concomitant]
     Active Substance: LETROZOLE
     Indication: Product used for unknown indication
     Dosage: UNK
     Route: 065
     Dates: start: 20210326
  3. ACETAMINOPHEN [Concomitant]
     Active Substance: ACETAMINOPHEN
     Indication: Product used for unknown indication
     Dosage: UNK
     Route: 065
  4. ZOLADEX [Concomitant]
     Active Substance: GOSERELIN ACETATE
     Indication: Product used for unknown indication
     Dosage: QMO
     Route: 065

REACTIONS (9)
  - Immunodeficiency [Unknown]
  - Bone cancer [Unknown]
  - Muscle atrophy [Unknown]
  - Feeling abnormal [Unknown]
  - Intervertebral disc protrusion [Unknown]
  - Back pain [Unknown]
  - Arthralgia [Unknown]
  - Malaise [Unknown]
  - Movement disorder [Unknown]

NARRATIVE: CASE EVENT DATE: 20200101
